FAERS Safety Report 6553134-X (Version None)
Quarter: 2010Q1

REPORT INFORMATION
  Report Type: 
  Country: None (occurrence: None)
  Receive Date: 20100127
  Receipt Date: 20090428
  Transmission Date: 20100710
  Serious: No
  Sender: FDA-Public Use
  Company Number: A0766885A

PATIENT
  Age: 54 Year
  Sex: Female

DRUGS (2)
  1. IMITREX [Suspect]
     Indication: MIGRAINE
     Route: 058
     Dates: start: 20090101, end: 20090128
  2. M.V.I. [Concomitant]

REACTIONS (2)
  - DRUG INEFFECTIVE [None]
  - PRODUCT QUALITY ISSUE [None]
